FAERS Safety Report 17184662 (Version 3)
Quarter: 2023Q4

REPORT INFORMATION
  Report Type: Report from Study
  Country: KR (occurrence: KR)
  Receive Date: 20191220
  Receipt Date: 20231027
  Transmission Date: 20240110
  Serious: Yes (Life-Threatening)
  Sender: FDA-Public Use
  Company Number: KR-GLAXOSMITHKLINE-KP2019TSO219524

PATIENT

DRUGS (9)
  1. ATEZOLIZUMAB [Suspect]
     Active Substance: ATEZOLIZUMAB
     Indication: Transitional cell carcinoma
     Dosage: 1200 MG, Q3W
     Route: 042
     Dates: start: 20191017, end: 20191017
  2. ATEZOLIZUMAB [Suspect]
     Active Substance: ATEZOLIZUMAB
     Dosage: UNK
     Route: 042
     Dates: start: 20191106, end: 20191106
  3. NIRAPARIB [Suspect]
     Active Substance: NIRAPARIB
     Indication: Transitional cell carcinoma
     Dosage: DATE OF MOST RECENT DOSE OF NIRAPARIB: 24/NOV/2019 (200 MG,1 IN 1 D
     Route: 048
     Dates: start: 20191017
  4. NIRAPARIB [Suspect]
     Active Substance: NIRAPARIB
     Dosage: 200 MG QD
     Route: 048
     Dates: start: 20191124
  5. LACTULOSE [Concomitant]
     Active Substance: LACTULOSE
     Indication: Constipation
     Dosage: 15 MG, PRN
     Route: 048
     Dates: start: 201909
  6. PLAVIX [Concomitant]
     Active Substance: CLOPIDOGREL BISULFATE
     Indication: Atrial fibrillation
     Dosage: 75 MG, QD
     Route: 048
     Dates: start: 201908, end: 20191027
  7. ASPIRIN [Concomitant]
     Active Substance: ASPIRIN
     Indication: Atrial fibrillation
     Dosage: 100 MG, QD
     Route: 048
     Dates: start: 20191028, end: 20191124
  8. PENIRAMIN [Concomitant]
     Indication: Product used for unknown indication
     Dosage: 2 MG
     Route: 042
     Dates: start: 20191125, end: 20191125
  9. HARTMAN-DEX [Concomitant]
     Indication: Product used for unknown indication
     Dosage: 500 ML
     Route: 042
     Dates: start: 20191125, end: 20191125

REACTIONS (1)
  - Platelet count decreased [Recovered/Resolved]

NARRATIVE: CASE EVENT DATE: 20191125
